FAERS Safety Report 5699840-0 (Version None)
Quarter: 2008Q2

REPORT INFORMATION
  Report Type: 
  Country: None (occurrence: None)
  Receive Date: 20080410
  Receipt Date: 20080312
  Transmission Date: 20081010
  Serious: No
  Sender: FDA-Public Use
  Company Number: US-BOEHRINGER INGELHEIM GMBH, GERMANY-2008-BP-03805BP

PATIENT
  Sex: Female

DRUGS (25)
  1. SPIRIVA [Suspect]
     Indication: CHRONIC OBSTRUCTIVE PULMONARY DISEASE
     Route: 055
     Dates: start: 20071101
  2. SPIRIVA [Suspect]
     Indication: BRONCHITIS
  3. ELAVIL [Concomitant]
     Route: 048
  4. FORADIL [Concomitant]
     Indication: CHRONIC OBSTRUCTIVE PULMONARY DISEASE
     Route: 048
  5. ZOCOR [Concomitant]
     Route: 048
  6. DELTASONE [Concomitant]
     Route: 048
  7. CALCIUM AND VITAMIN D [Concomitant]
     Route: 048
  8. NASONEX [Concomitant]
     Route: 045
  9. MUCINEX DM [Concomitant]
     Route: 048
  10. COZAAR [Concomitant]
     Route: 048
  11. LUMIGAN [Concomitant]
  12. ZESTRIL [Concomitant]
     Route: 048
  13. GLYBURIDE [Concomitant]
     Route: 048
  14. ULTRAM [Concomitant]
     Route: 048
  15. SALINE NASAL SPRAY [Concomitant]
  16. VITAMIN B COMPLEX CAP [Concomitant]
     Route: 048
  17. ASPIRIN [Concomitant]
     Route: 048
  18. ZANTAC [Concomitant]
     Route: 048
  19. MAGNESIUM GLUCONATE [Concomitant]
     Route: 048
  20. CLARITIN [Concomitant]
     Route: 048
  21. PROLOPRIM [Concomitant]
     Route: 048
  22. QUININE SULFATE [Concomitant]
     Route: 048
  23. STOOL SOFTENER [Concomitant]
     Route: 048
  24. PROVENTIL [Concomitant]
     Route: 055
  25. HYDROCHLOROTHIAZIDE [Concomitant]
     Route: 048

REACTIONS (1)
  - DRUG INEFFECTIVE [None]
